FAERS Safety Report 16047395 (Version 1)
Quarter: 2019Q1

REPORT INFORMATION
  Report Type: Spontaneous
  Country: CN (occurrence: CN)
  Receive Date: 20190307
  Receipt Date: 20190307
  Transmission Date: 20190418
  Serious: Yes (Other)
  Sender: FDA-Public Use
  Company Number: CN-009507513-1903CHN000380

PATIENT
  Age: 72 Year
  Sex: Female
  Weight: 64 kg

DRUGS (2)
  1. TIENAM [Suspect]
     Active Substance: CILASTATIN SODIUM\IMIPENEM
     Indication: INFECTION
     Dosage: 1 VIAL, Q8H
     Route: 041
     Dates: start: 20190127, end: 20190131
  2. SODIUM CHLORIDE. [Concomitant]
     Active Substance: SODIUM CHLORIDE
     Dosage: 50 ML, Q8H; INDICATION: SOLVENT
     Route: 041
     Dates: start: 20190127, end: 20190131

REACTIONS (1)
  - Paroxysmal sympathetic hyperactivity [Recovered/Resolved]

NARRATIVE: CASE EVENT DATE: 20190130
